FAERS Safety Report 23667530 (Version 2)
Quarter: 2024Q2

REPORT INFORMATION
  Report Type: Spontaneous
  Country: US (occurrence: US)
  Receive Date: 20240325
  Receipt Date: 20240415
  Transmission Date: 20240716
  Serious: Yes (Hospitalization, Other)
  Sender: FDA-Public Use
  Company Number: US-TEVA-VS-3173801

PATIENT
  Age: 37 Year
  Sex: Male

DRUGS (7)
  1. PRAZOSIN [Suspect]
     Active Substance: PRAZOSIN
     Indication: Depression
     Route: 065
  2. SERTRALINE [Suspect]
     Active Substance: SERTRALINE HYDROCHLORIDE
     Indication: Depression
     Route: 065
  3. TRAZODONE [Suspect]
     Active Substance: TRAZODONE HYDROCHLORIDE
     Indication: Depression
     Route: 065
  4. PSEUDOEPHEDRINE [Suspect]
     Active Substance: PSEUDOEPHEDRINE
     Indication: Priapism
     Dosage: RECEIVED TOTAL OF 8 PILLS OF PSEUDOEPHEDRINE 30MG IN THE SPAN OF SIX HOURS
     Route: 065
  5. PSEUDOEPHEDRINE [Suspect]
     Active Substance: PSEUDOEPHEDRINE
     Indication: Priapism
     Dosage: RECEIVED PILLS
     Route: 065
  6. PHENYLEPHRINE [Concomitant]
     Active Substance: PHENYLEPHRINE HYDROCHLORIDE
     Indication: Priapism
     Route: 065
  7. SILDENAFIL [Suspect]
     Active Substance: SILDENAFIL
     Indication: Priapism
     Route: 065

REACTIONS (3)
  - Priapism [Recovering/Resolving]
  - Drug ineffective [Unknown]
  - Myocardial ischaemia [Recovering/Resolving]
